FAERS Safety Report 9001253 (Version 1)
Quarter: 2013Q1

REPORT INFORMATION
  Report Type: Spontaneous
  Country: US (occurrence: US)
  Receive Date: 20130107
  Receipt Date: 20130107
  Transmission Date: 20140127
  Serious: Yes (Other)
  Sender: FDA-Public Use
  Company Number: US-PFIZER INC-2013003889

PATIENT
  Sex: Female

DRUGS (3)
  1. GEODON [Suspect]
     Indication: HALLUCINATION
     Dosage: UNK
  2. GEODON [Suspect]
     Dosage: 6-8 20 MG TABLETS
     Dates: start: 2003
  3. GEODON [Suspect]
     Dosage: TWO 20 MG, ONE AROUND 2 IN THE AFTERNOON AND OTHER ONE WHEN WENT TO BED
     Dates: start: 2005

REACTIONS (2)
  - Derealisation [Recovering/Resolving]
  - Fatigue [Recovering/Resolving]
